FAERS Safety Report 9788826 (Version 1)
Quarter: 2013Q4

REPORT INFORMATION
  Report Type: Spontaneous
  Country: US (occurrence: US)
  Receive Date: 20131230
  Receipt Date: 20131230
  Transmission Date: 20140711
  Serious: Yes (Other)
  Sender: FDA-Public Use
  Company Number: US-TEVA-453468USA

PATIENT
  Age: 61 Year
  Sex: Male

DRUGS (10)
  1. CISPLATIN [Suspect]
     Indication: HODGKIN^S DISEASE
     Route: 065
  2. CISPLATIN [Suspect]
     Indication: HODGKIN^S DISEASE
     Route: 065
  3. DEXAMETHASONE [Suspect]
     Indication: HODGKIN^S DISEASE
     Route: 065
  4. DEXAMETHASONE [Suspect]
     Indication: HODGKIN^S DISEASE
     Route: 065
  5. CYTARABINE [Suspect]
     Indication: HODGKIN^S DISEASE
     Dosage: HIGH-DOSE
     Route: 065
  6. GEMCITABINE [Concomitant]
     Indication: HODGKIN^S DISEASE
     Route: 065
  7. TENOFOVIR [Concomitant]
     Indication: ACQUIRED IMMUNODEFICIENCY SYNDROME
     Route: 065
  8. EMTRICITABINE [Concomitant]
     Indication: ACQUIRED IMMUNODEFICIENCY SYNDROME
     Route: 065
  9. DARUNAVIR [Concomitant]
     Indication: ACQUIRED IMMUNODEFICIENCY SYNDROME
     Route: 065
  10. RITONAVIR [Concomitant]
     Indication: ACQUIRED IMMUNODEFICIENCY SYNDROME
     Route: 065

REACTIONS (2)
  - Pancytopenia [Unknown]
  - Autonomic neuropathy [Unknown]
